FAERS Safety Report 5196910-0 (Version None)
Quarter: 2006Q4

REPORT INFORMATION
  Report Type: 
  Country: None (occurrence: None)
  Receive Date: 20061227
  Receipt Date: 20061215
  Transmission Date: 20070319
  Serious: Yes (Hospitalization)
  Sender: FDA-Public Use
  Company Number: 151015ISR

PATIENT
  Age: 87 Year
  Sex: Female

DRUGS (4)
  1. LISINOPRIL AND HYDROCHLOROTHIAZIDE [Suspect]
     Indication: ESSENTIAL HYPERTENSION
     Dosage: 20MG/12.5MG1 IN 1 D), ORAL/MONTHS
     Route: 048
     Dates: start: 20060718
  2. LITHIUM CARBONATE [Suspect]
     Indication: BIPOLAR DISORDER
     Dosage: 400 MG (400 MG, 1 IN 1 D), ORAL/YEARS
     Route: 048
     Dates: start: 20060718
  3. FLUPENTIXOL DIHYDROCHLORIDE [Suspect]
     Indication: BIPOLAR DISORDER
     Dosage: (1 IN 1 D), ORAL, YEARS
     Route: 048
  4. LEVODOPA W/BENSERAZIDE/ [Concomitant]

REACTIONS (6)
  - DIARRHOEA [None]
  - DRUG TOXICITY [None]
  - DYSARTHRIA [None]
  - GAIT DISTURBANCE [None]
  - OVERDOSE [None]
  - RENAL FAILURE ACUTE [None]
